FAERS Safety Report 5401145-X (Version None)
Quarter: 2007Q3

REPORT INFORMATION
  Report Type: 
  Country: None (occurrence: None)
  Receive Date: 20070726
  Receipt Date: 20070717
  Transmission Date: 20080115
  Serious: Yes (Other)
  Sender: FDA-Public Use
  Company Number: 2007PV032974

PATIENT
  Age: 66 Year
  Sex: Female
  Weight: 79.3795 kg

DRUGS (19)
  1. SYMLIN [Suspect]
     Indication: TYPE 1 DIABETES MELLITUS
     Dosage: BID; SC;  TID; SC
     Route: 058
     Dates: start: 20070215, end: 20070401
  2. SYMLIN [Suspect]
     Indication: TYPE 1 DIABETES MELLITUS
     Dosage: BID; SC;  TID; SC
     Route: 058
     Dates: start: 20070401, end: 20070513
  3. ASPIRIN [Suspect]
     Indication: DRUG USE FOR UNKNOWN INDICATION
     Dates: start: 20070301, end: 20070511
  4. BYETTA [Concomitant]
  5. HUMALOG [Concomitant]
  6. PROTONIX [Concomitant]
  7. ESTRADIOL [Concomitant]
  8. ZANAFLEX [Concomitant]
  9. SYNTHROID [Concomitant]
  10. COZAAR [Concomitant]
  11. ZYRTEC [Concomitant]
  12. LIPITOR [Concomitant]
  13. CALCIUM CHLORIDE [Concomitant]
  14. FISH OIL [Concomitant]
  15. CENTRUM [Concomitant]
  16. FOLIC ACID [Concomitant]
  17. GLUCOSAMINE SULFATE [Concomitant]
  18. FLONASE [Concomitant]
  19. LANTUS [Concomitant]

REACTIONS (14)
  - ASTHENIA [None]
  - BARRETT'S OESOPHAGUS [None]
  - CONDITION AGGRAVATED [None]
  - DECREASED APPETITE [None]
  - DIVERTICULUM [None]
  - EAR DISORDER [None]
  - GASTRITIS EROSIVE [None]
  - HAEMOGLOBIN DECREASED [None]
  - HYPOTENSION [None]
  - MELAENA [None]
  - NAUSEA [None]
  - PALLOR [None]
  - POSTOPERATIVE ADHESION [None]
  - WEIGHT DECREASED [None]
